FAERS Safety Report 6755778-9 (Version None)
Quarter: 2010Q2

REPORT INFORMATION
  Report Type: 
  Country: None (occurrence: None)
  Receive Date: 20100604
  Receipt Date: 20100526
  Transmission Date: 20101027
  Serious: Yes (Hospitalization)
  Sender: FDA-Public Use
  Company Number: DE-ELI_LILLY_AND_COMPANY-DE201003006179

PATIENT
  Sex: Male
  Weight: 75 kg

DRUGS (7)
  1. ALIMTA [Suspect]
     Indication: LUNG ADENOCARCINOMA
     Dosage: 950 MG/M2, UNKNOWN
     Route: 042
     Dates: start: 20100222
  2. ALIMTA [Suspect]
     Dosage: 950 MG/M2, UNKNOWN
     Route: 042
     Dates: start: 20100318
  3. CARBOPLATIN [Concomitant]
     Indication: LUNG ADENOCARCINOMA
     Dosage: 430 MG, UNKNOWN
     Route: 065
  4. FOLSAN [Concomitant]
     Dosage: 0.4 MG, UNKNOWN
     Route: 065
  5. FOLSAN [Concomitant]
     Dosage: 0.4 MG, 2/D
     Route: 065
  6. DEXAMETHASONE [Concomitant]
     Dosage: 16 MG, UNKNOWN
     Route: 042
     Dates: start: 20100222
  7. VITAMIN B-12 [Concomitant]
     Dosage: UNK, UNKNOWN
     Route: 058

REACTIONS (5)
  - APHTHOUS STOMATITIS [None]
  - DYSPHAGIA [None]
  - LARYNGITIS [None]
  - MUCOSAL EROSION [None]
  - OFF LABEL USE [None]
